FAERS Safety Report 10110126 (Version 1)
Quarter: 2014Q2

REPORT INFORMATION
  Report Type: Spontaneous
  Country: US (occurrence: None)
  Receive Date: 20140421
  Receipt Date: 20140421
  Transmission Date: 20141212
  Serious: No
  Sender: FDA-Public Use
  Company Number: AEGR000087

PATIENT
  Age: 64 Year
  Sex: Female
  Weight: 77.1 kg

DRUGS (6)
  1. JUXTAPID [Suspect]
     Indication: TYPE IIA HYPERLIPIDAEMIA
     Route: 048
     Dates: start: 20130622
  2. ASPIRIN (ACETYLSLICYLIC ACID) [Concomitant]
  3. LEXAPRO (ESCITALOPRAM OXALATE) [Concomitant]
  4. MICARDIS (TELMISARTAN) [Concomitant]
  5. VITAMIN D (EGOCALCIFEROL) [Concomitant]
  6. ACTOS (PIOGLITAZONE HYDROCHLORIDE) [Concomitant]

REACTIONS (1)
  - Weight decreased [None]
